FAERS Safety Report 7827411-6 (Version None)
Quarter: 2011Q4

REPORT INFORMATION
  Report Type: 
  Country: None (occurrence: None)
  Receive Date: 20111020
  Receipt Date: 20111014
  Transmission Date: 20120403
  Serious: Yes (Death, Other)
  Sender: FDA-Public Use
  Company Number: ES-JNJFOC-20111007226

PATIENT
  Age: 33 Year
  Sex: Female

DRUGS (5)
  1. ACETAMINOPHEN [Suspect]
     Indication: ANALGESIC THERAPY
     Route: 065
     Dates: start: 20110301
  2. DEXAMETHASONE [Concomitant]
     Indication: ANALGESIC THERAPY
     Route: 065
     Dates: start: 20110301
  3. FENTANYL [Suspect]
     Indication: ANALGESIC THERAPY
     Route: 060
     Dates: start: 20110301
  4. HYDROMORPHONE HCL [Suspect]
     Indication: ANALGESIC THERAPY
     Route: 065
     Dates: start: 20110301
  5. ACETAMINOPHEN [Suspect]
     Route: 065

REACTIONS (2)
  - DYSPNOEA [None]
  - SEDATION [None]
